FAERS Safety Report 7512192-6 (Version None)
Quarter: 2011Q2

REPORT INFORMATION
  Report Type: 
  Country: None (occurrence: None)
  Receive Date: 20110531
  Receipt Date: 20110525
  Transmission Date: 20111010
  Serious: Yes (Other)
  Sender: FDA-Public Use
  Company Number: US-PFIZER INC-2011115193

PATIENT
  Sex: Male
  Weight: 78.5 kg

DRUGS (2)
  1. DEXILANT [Concomitant]
     Indication: REFLUX OESOPHAGITIS
     Dosage: 60 MG, DAILY
     Route: 048
  2. CHANTIX [Suspect]
     Indication: SMOKING CESSATION THERAPY
     Dosage: 0.5 MG, DAILY
     Route: 048
     Dates: start: 20110523, end: 20110524

REACTIONS (4)
  - HEART RATE INCREASED [None]
  - PANIC ATTACK [None]
  - MORBID THOUGHTS [None]
  - ANXIETY [None]
